FAERS Safety Report 6641427-7 (Version None)
Quarter: 2010Q1

REPORT INFORMATION
  Report Type: 
  Country: None (occurrence: None)
  Receive Date: 20100317
  Receipt Date: 20100317
  Transmission Date: 20100710
  Serious: Yes (Hospitalization)
  Sender: FDA-Public Use
  Company Number: None

PATIENT
  Age: 44 Year
  Sex: Female

DRUGS (1)
  1. LITHIUM CARBONATE [Suspect]
     Indication: BIPOLAR I DISORDER
     Dosage: 900 MG HS PO
     Route: 048
     Dates: start: 20080324, end: 20090806

REACTIONS (7)
  - CONFUSIONAL STATE [None]
  - DIALYSIS [None]
  - DIARRHOEA [None]
  - HYPOTHYROIDISM [None]
  - NAUSEA [None]
  - THERAPEUTIC AGENT TOXICITY [None]
  - VOMITING [None]
